FAERS Safety Report 4571742-2 (Version None)
Quarter: 2005Q1

REPORT INFORMATION
  Report Type: 
  Country: None (occurrence: None)
  Receive Date: 20050202
  Receipt Date: 20050202
  Transmission Date: 20050727
  Serious: Yes (Hospitalization)
  Sender: FDA-Public Use
  Company Number: None

PATIENT
  Sex: Male

DRUGS (1)
  1. KEPPRA [Suspect]
     Indication: CONVULSION
     Dosage: ORAL
     Route: 048
     Dates: start: 20030113, end: 20030820

REACTIONS (3)
  - DELIRIUM [None]
  - HEPATIC ENCEPHALOPATHY [None]
  - PSYCHOTIC DISORDER [None]
